FAERS Safety Report 21985899 (Version 1)
Quarter: 2023Q1

REPORT INFORMATION
  Report Type: Spontaneous
  Country: US (occurrence: None)
  Receive Date: 20230211
  Receipt Date: 20230211
  Transmission Date: 20230418
  Serious: Yes (Other)
  Sender: FDA-Public Use
  Company Number: None

PATIENT
  Age: 65 Year
  Sex: Female
  Weight: 99 kg

DRUGS (22)
  1. CONTRAVE [Suspect]
     Active Substance: BUPROPION HYDROCHLORIDE\NALTREXONE HYDROCHLORIDE
     Indication: Weight control
     Dosage: FREQUENCY : EVERY 12 HOURS;?
     Route: 048
     Dates: start: 20221001, end: 20230206
  2. TOPAMAX [Concomitant]
     Active Substance: TOPIRAMATE
  3. PROPRANOLOL [Concomitant]
     Active Substance: PROPRANOLOL HYDROCHLORIDE
  4. BUDESONIDE [Concomitant]
     Active Substance: BUDESONIDE
  5. NP THYROID [Concomitant]
     Active Substance: LEVOTHYROXINE\LIOTHYRONINE
  6. GABAPENTIN [Concomitant]
     Active Substance: GABAPENTIN
  7. oxybutenin [Concomitant]
  8. BUSPIRONE [Concomitant]
     Active Substance: BUSPIRONE HYDROCHLORIDE
  9. LOSARTAN [Concomitant]
     Active Substance: LOSARTAN
  10. VALACYCLOVIR [Concomitant]
     Active Substance: VALACYCLOVIR HYDROCHLORIDE
  11. MOMETASONE [Concomitant]
     Active Substance: MOMETASONE
  12. Ashwagandah [Concomitant]
  13. HERBALS\TURMERIC [Concomitant]
     Active Substance: HERBALS\TURMERIC
  14. LYSINE [Concomitant]
     Active Substance: LYSINE
  15. osteo-bifle [Concomitant]
  16. CALCIUM [Concomitant]
     Active Substance: CALCIUM
  17. FLAXSEED [Concomitant]
     Active Substance: FLAX SEED
  18. PRILOSEC [Concomitant]
     Active Substance: OMEPRAZOLE MAGNESIUM
  19. PEPCID AC [Concomitant]
     Active Substance: FAMOTIDINE
  20. BENADRYL [Concomitant]
     Active Substance: DIPHENHYDRAMINE HYDROCHLORIDE
  21. ZYRTEC [Concomitant]
     Active Substance: CETIRIZINE HYDROCHLORIDE
  22. ALLEGRA [Concomitant]
     Active Substance: FEXOFENADINE HYDROCHLORIDE

REACTIONS (1)
  - Alopecia [None]

NARRATIVE: CASE EVENT DATE: 20230209
